FAERS Safety Report 4553533-1 (Version None)
Quarter: 2004Q4

REPORT INFORMATION
  Report Type: 
  Country: None (occurrence: None)
  Receive Date: 20041227
  Receipt Date: 20041022
  Transmission Date: 20050328
  Serious: No
  Sender: FDA-Public Use
  Company Number: 04P-163-0278524-00

PATIENT
  Age: 63 Year
  Sex: Female
  Weight: 67.1324 kg

DRUGS (10)
  1. HUMIRA [Suspect]
     Indication: RHEUMATOID ARTHRITIS
     Dosage: 40 MG, 1 IN 2 WK, SUBCUTANEOUS
     Route: 058
     Dates: start: 20031001
  2. LEVOTHYROXINE [Concomitant]
  3. BUCINDOLOL HYDROCHLORIDE [Concomitant]
  4. SERTRALINE HYDROCHLORIDE [Concomitant]
  5. PREDNISONE [Concomitant]
  6. DOXEPIN HCL [Concomitant]
  7. ALPRAZOLAM [Concomitant]
  8. M.V.I. [Concomitant]
  9. FISH OIL [Concomitant]
  10. LINSEED OIL [Concomitant]

REACTIONS (3)
  - BLOOD CHOLESTEROL INCREASED [None]
  - HIGH DENSITY LIPOPROTEIN DECREASED [None]
  - LOW DENSITY LIPOPROTEIN INCREASED [None]
